FAERS Safety Report 6841874-4 (Version None)
Quarter: 2010Q3

REPORT INFORMATION
  Report Type: 
  Country: None (occurrence: None)
  Receive Date: 20100714
  Receipt Date: 20070717
  Transmission Date: 20110219
  Serious: Yes (Other)
  Sender: FDA-Public Use
  Company Number: US-PFIZER INC-2007059673

PATIENT
  Age: 44 Year
  Sex: Female
  Weight: 55.3 kg

DRUGS (1)
  1. CHANTIX [Suspect]
     Indication: SMOKING CESSATION THERAPY
     Dates: start: 20070629

REACTIONS (18)
  - ABNORMAL DREAMS [None]
  - CHEST PAIN [None]
  - CONSTIPATION [None]
  - DIARRHOEA [None]
  - DRY MOUTH [None]
  - DYSPNOEA [None]
  - FATIGUE [None]
  - FEELING ABNORMAL [None]
  - FLATULENCE [None]
  - HEADACHE [None]
  - INSOMNIA [None]
  - MALAISE [None]
  - MENTAL STATUS CHANGES [None]
  - MOOD ALTERED [None]
  - MYOCARDIAL INFARCTION [None]
  - NIGHTMARE [None]
  - RESTLESSNESS [None]
  - VISION BLURRED [None]
